FAERS Safety Report 5850086-2 (Version None)
Quarter: 2008Q3

REPORT INFORMATION
  Report Type: 
  Country: None (occurrence: None)
  Receive Date: 20080819
  Receipt Date: 20080804
  Transmission Date: 20090109
  Serious: Yes (Death, Hospitalization)
  Sender: FDA-Public Use
  Company Number: US-GENENTECH-219418

PATIENT
  Sex: Female

DRUGS (2)
  1. BEVACIZUMAB [Suspect]
     Indication: OVARIAN CANCER
     Dosage: 15 MG/KG, Q3W
     Route: 042
     Dates: start: 20050819
  2. ERLOTINIB [Suspect]
     Indication: OVARIAN CANCER
     Dosage: 150 MG, QD
     Route: 048
     Dates: start: 20050819

REACTIONS (2)
  - INTESTINAL PERFORATION [None]
  - SMALL INTESTINAL OBSTRUCTION [None]
